FAERS Safety Report 22080948 (Version 2)
Quarter: 2023Q1

REPORT INFORMATION
  Report Type: Spontaneous
  Country: US (occurrence: US)
  Receive Date: 20230309
  Receipt Date: 20230323
  Transmission Date: 20230417
  Serious: Yes (Other)
  Sender: FDA-Public Use
  Company Number: US-TEVA-2023-US-2862357

PATIENT
  Age: 53 Year
  Sex: Female

DRUGS (7)
  1. RIZATRIPTAN [Suspect]
     Active Substance: RIZATRIPTAN
     Indication: Migraine
     Dosage: 10 MG
     Route: 065
  2. FROVATRIPTAN [Suspect]
     Active Substance: FROVATRIPTAN
     Indication: Migraine
     Dosage: 2.5 MG
     Route: 065
  3. UBROGEPANT [Interacting]
     Active Substance: UBROGEPANT
     Indication: Migraine
     Dosage: 50 MG , SINGLE DOSE
     Route: 065
  4. UBROGEPANT [Interacting]
     Active Substance: UBROGEPANT
     Dosage: 25 MG
     Route: 065
  5. ONABOTULINUMTOXINA [Interacting]
     Active Substance: ONABOTULINUMTOXINA
     Indication: Migraine
     Route: 065
  6. RIMEGEPANT [Interacting]
     Active Substance: RIMEGEPANT
     Indication: Migraine
     Dosage: 75 MG
     Route: 065
  7. NORTRIPTYLINE [Concomitant]
     Active Substance: NORTRIPTYLINE
     Indication: Migraine
     Dosage: 20 MILLIGRAM DAILY; ONCE A DAY
     Route: 065

REACTIONS (4)
  - Sedation [Unknown]
  - Drug ineffective [Unknown]
  - Raynaud^s phenomenon [Recovered/Resolved]
  - Drug interaction [Unknown]
